FAERS Safety Report 8963907 (Version 1)
Quarter: 2012Q4

REPORT INFORMATION
  Report Type: 
  Country: GB (occurrence: GB)
  Receive Date: 20121214
  Receipt Date: 20121214
  Transmission Date: 20130627
  Serious: Yes (Other)
  Sender: FDA-Public Use
  Company Number: PHFR2012GB006437

PATIENT
  Sex: Female

DRUGS (1)
  1. ACLASTA [Suspect]
     Dosage: 5 mg, UNK
     Route: 042

REACTIONS (3)
  - Arthropathy [Unknown]
  - Dysstasia [Unknown]
  - Groin pain [Unknown]
